FAERS Safety Report 9302638 (Version 3)
Quarter: 2013Q3

REPORT INFORMATION
  Report Type: Spontaneous
  Country: US (occurrence: US)
  Receive Date: 20130522
  Receipt Date: 20130923
  Transmission Date: 20140515
  Serious: Yes (Death, Hospitalization, Disabling, Other)
  Sender: FDA-Public Use
  Company Number: US-SANOFI-AVENTIS-2013SA049912

PATIENT
  Age: 65 Year
  Sex: Male

DRUGS (4)
  1. CLOPIDOGREL BISULFATE [Suspect]
     Indication: MYOCARDIAL INFARCTION
     Route: 065
  2. CLOPIDOGREL BISULFATE [Suspect]
     Indication: MYOCARDIAL INFARCTION
     Route: 065
  3. PRASUGREL [Suspect]
     Indication: ANTIPLATELET THERAPY
     Route: 065
  4. ASPIRIN [Concomitant]

REACTIONS (19)
  - Sepsis [Fatal]
  - Off label use [Fatal]
  - Dizziness [Fatal]
  - Disorientation [Fatal]
  - Confusional state [Fatal]
  - Headache [Fatal]
  - Asthenia [Fatal]
  - White blood cell count increased [Fatal]
  - Pyrexia [Fatal]
  - Sinusitis [Fatal]
  - Systemic inflammatory response syndrome [Fatal]
  - Cough [Fatal]
  - Petechiae [Fatal]
  - Respiratory failure [Fatal]
  - Dyspnoea [Fatal]
  - Hepatic failure [Fatal]
  - Ammonia increased [Fatal]
  - Renal failure [Fatal]
  - Blindness [Fatal]
